FAERS Safety Report 5476427-6 (Version None)
Quarter: 2007Q4

REPORT INFORMATION
  Report Type: 
  Country: None (occurrence: None)
  Receive Date: 20071003
  Receipt Date: 20070924
  Transmission Date: 20080405
  Serious: Yes (Other)
  Sender: FDA-Public Use
  Company Number: US-PFIZER INC-2007080487

PATIENT
  Sex: Male
  Weight: 92.5 kg

DRUGS (6)
  1. VIAGRA [Interacting]
     Indication: ERECTILE DYSFUNCTION
  2. GLUCOTROL [Suspect]
     Indication: DIABETES MELLITUS
  3. INTERFERON ALFA [Interacting]
     Indication: HEPATITIS C
  4. REBETRON [Interacting]
     Indication: HEPATITIS C
  5. ASPIRIN [Concomitant]
  6. METFORMIN HCL [Concomitant]

REACTIONS (7)
  - BLOOD URINE PRESENT [None]
  - DRUG INEFFECTIVE [None]
  - DRUG INTERACTION [None]
  - GLYCOSYLATED HAEMOGLOBIN INCREASED [None]
  - HEPATITIS C [None]
  - HYPERTENSION [None]
  - HYPOTHYROIDISM [None]
